FAERS Safety Report 9620763 (Version 2)
Quarter: 2013Q4

REPORT INFORMATION
  Report Type: Spontaneous
  Country: CA (occurrence: CA)
  Receive Date: 20131015
  Receipt Date: 20131219
  Transmission Date: 20140711
  Serious: Yes (Hospitalization, Other)
  Sender: FDA-Public Use
  Company Number: CA-RANBAXY-2013US-74038

PATIENT
  Age: 75 Year
  Sex: Female

DRUGS (4)
  1. GABAPENTIN [Suspect]
     Indication: NEURALGIA
     Dosage: 1800 MG/DAY
     Route: 065
  2. GABAPENTIN [Suspect]
     Indication: FIBROMYALGIA
  3. SERTRALINE [Concomitant]
     Indication: DEPRESSION
     Dosage: 300 MG/DAY
     Route: 065
  4. LORAZEPAM [Concomitant]
     Indication: DEPRESSION
     Dosage: 3 MG/DAY
     Route: 065

REACTIONS (13)
  - Agitation [Recovered/Resolved]
  - Decreased appetite [Recovered/Resolved]
  - Cold sweat [Recovered/Resolved]
  - Chills [Recovered/Resolved]
  - Nausea [Recovered/Resolved]
  - Insomnia [Recovered/Resolved]
  - Abdominal pain [Recovered/Resolved]
  - Headache [Recovered/Resolved]
  - Drug withdrawal syndrome [Recovered/Resolved]
  - Hepatic enzyme increased [Recovered/Resolved]
  - Blood pressure increased [Recovered/Resolved]
  - Fall [Recovered/Resolved]
  - Hypokalaemia [Recovered/Resolved]
